FAERS Safety Report 13486315 (Version 1)
Quarter: 2017Q2

REPORT INFORMATION
  Report Type: Report from Study
  Country: None (occurrence: US)
  Receive Date: 20170426
  Receipt Date: 20170426
  Transmission Date: 20170830
  Serious: Yes (Hospitalization)
  Sender: FDA-Public Use
  Company Number: US-ABBVIE-17P-163-1863029-00

PATIENT
  Age: 9 Month
  Sex: Male
  Weight: 11.3 kg

DRUGS (1)
  1. SYNAGIS [Suspect]
     Active Substance: PALIVIZUMAB
     Indication: ANTIVIRAL PROPHYLAXIS
     Dosage: 15MG PER KG, MONTHLY
     Route: 030

REACTIONS (4)
  - Pyrexia [Unknown]
  - Impetigo [Unknown]
  - Ear infection [Unknown]
  - Rash [Unknown]

NARRATIVE: CASE EVENT DATE: 20170308
